FAERS Safety Report 4988354-9 (Version None)
Quarter: 2006Q2

REPORT INFORMATION
  Report Type: 
  Country: None (occurrence: None)
  Receive Date: 20060426
  Receipt Date: 20060410
  Transmission Date: 20061013
  Serious: Yes (Hospitalization)
  Sender: FDA-Public Use
  Company Number: 2006000824

PATIENT
  Age: 76 Year
  Sex: Male

DRUGS (12)
  1. TARCEVA [Suspect]
     Indication: LUNG CANCER METASTATIC
     Dosage: 150 MG (QD), ORAL
     Route: 048
     Dates: start: 20051214
  2. OXYCODONE HCL [Concomitant]
  3. FOLATE SODIUM [Concomitant]
  4. SALBUTAMOL [Concomitant]
  5. THEOPHYLLINE [Concomitant]
  6. PREDNISONE TAB [Concomitant]
  7. PANTOPRAZOLE [Concomitant]
  8. ACETYLSALICYLIC ACID SRT [Concomitant]
  9. ALENDRONATE SODIUM [Concomitant]
  10. CALCIUM GLUCONATE [Concomitant]
  11. ANAGRELIDE [Concomitant]
  12. NAPROXEN SODIUM [Concomitant]

REACTIONS (7)
  - ABDOMINAL DISTENSION [None]
  - DYSPNOEA [None]
  - GASTRIC POLYPS [None]
  - GASTROINTESTINAL MOTILITY DISORDER [None]
  - HIATUS HERNIA [None]
  - ORAL INTAKE REDUCED [None]
  - SPLENOMEGALY [None]
